FAERS Safety Report 24771914 (Version 1)
Quarter: 2024Q4

REPORT INFORMATION
  Report Type: Spontaneous
  Country: CN (occurrence: CN)
  Receive Date: 20241224
  Receipt Date: 20241224
  Transmission Date: 20250114
  Serious: Yes (Other)
  Sender: DAIICHI
  Company Number: CN-DSJP-DS-2024-114313-CN

PATIENT
  Age: 61 Year
  Sex: Female
  Weight: 43 kg

DRUGS (2)
  1. ENHERTU [Suspect]
     Active Substance: FAM-TRASTUZUMAB DERUXTECAN-NXKI
     Indication: Breast cancer
     Dosage: 100 MG, QD
     Route: 041
     Dates: start: 20241121, end: 20241121
  2. DEXTROSE [Concomitant]
     Active Substance: DEXTROSE MONOHYDRATE
     Indication: Product used for unknown indication
     Dosage: 100 ML
     Route: 041
     Dates: start: 20241121, end: 20241121

REACTIONS (1)
  - Myelosuppression [Unknown]

NARRATIVE: CASE EVENT DATE: 20241202
